FAERS Safety Report 23451932 (Version 1)
Quarter: 2024Q1

REPORT INFORMATION
  Report Type: Spontaneous
  Country: US (occurrence: None)
  Receive Date: 20240127
  Receipt Date: 20240127
  Transmission Date: 20240409
  Serious: Yes (Disabling)
  Sender: FDA-Public Use
  Company Number: None

PATIENT
  Age: 50 Year
  Sex: Female
  Weight: 86.85 kg

DRUGS (5)
  1. OZEMPIC [Suspect]
     Active Substance: SEMAGLUTIDE
     Indication: Glucose tolerance impaired
  2. OMEPRAZOLE [Concomitant]
     Active Substance: OMEPRAZOLE
  3. AMLODIPINE [Concomitant]
     Active Substance: AMLODIPINE BESYLATE
  4. LEXAPRO [Concomitant]
     Active Substance: ESCITALOPRAM OXALATE
  5. PROBIOTICS NOS [Concomitant]
     Active Substance: PROBIOTICS NOS

REACTIONS (17)
  - Abdominal pain upper [None]
  - Frequent bowel movements [None]
  - Eructation [None]
  - Tremor [None]
  - Fatigue [None]
  - Dizziness [None]
  - Palpitations [None]
  - Chest pain [None]
  - Back pain [None]
  - Feeling cold [None]
  - Paraesthesia [None]
  - Paraesthesia [None]
  - Vision blurred [None]
  - Dyspnoea [None]
  - Dizziness [None]
  - Dysstasia [None]
  - Posture abnormal [None]

NARRATIVE: CASE EVENT DATE: 20240105
